FAERS Safety Report 5472063-6 (Version None)
Quarter: 2007Q3

REPORT INFORMATION
  Report Type: 
  Country: None (occurrence: None)
  Receive Date: 20070928
  Receipt Date: 20070920
  Transmission Date: 20080115
  Serious: Yes (Other)
  Sender: FDA-Public Use
  Company Number: US-PFIZER INC-2007079018

PATIENT
  Sex: Male
  Weight: 86.363 kg

DRUGS (9)
  1. LIPITOR [Suspect]
     Indication: BLOOD CHOLESTEROL INCREASED
  2. LISINOPRIL [Concomitant]
  3. LASIX [Concomitant]
  4. COREG [Concomitant]
  5. ASPIRIN [Concomitant]
  6. AMBIEN [Concomitant]
  7. PLAVIX [Concomitant]
  8. XANAX [Concomitant]
  9. DARVOCET [Concomitant]

REACTIONS (6)
  - ABDOMINAL PAIN UPPER [None]
  - BLOOD CHOLESTEROL INCREASED [None]
  - FATIGUE [None]
  - INTENTIONAL DRUG MISUSE [None]
  - NAUSEA [None]
  - PAIN [None]
